FAERS Safety Report 6388870-1 (Version None)
Quarter: 2009Q4

REPORT INFORMATION
  Report Type: 
  Country: None (occurrence: None)
  Receive Date: 20091001
  Receipt Date: 20090922
  Transmission Date: 20100525
  Serious: No
  Sender: FDA-Public Use
  Company Number: ADR29852009

PATIENT
  Age: 60 Year
  Sex: Female

DRUGS (2)
  1. RAMIPRIL [Suspect]
     Indication: HYPERTENSION
     Dosage: 2.5 MG, ORAL
     Route: 048
     Dates: start: 20061204, end: 20061215
  2. CO-TENIDONE [Concomitant]

REACTIONS (1)
  - MOUTH ULCERATION [None]
